FAERS Safety Report 18867840 (Version 2)
Quarter: 2022Q4

REPORT INFORMATION
  Report Type: Report from Study
  Country: GB (occurrence: GB)
  Receive Date: 20210209
  Receipt Date: 20221205
  Transmission Date: 20230112
  Serious: Yes (Hospitalization, Other)
  Sender: FDA-Public Use
  Company Number: GB-GLAXOSMITHKLINE-GB2021EME029711

PATIENT

DRUGS (1)
  1. MEPOLIZUMAB [Suspect]
     Active Substance: MEPOLIZUMAB
     Indication: Asthma
     Dosage: 100 MG
     Dates: start: 202011

REACTIONS (7)
  - Lower respiratory tract infection [Recovered/Resolved]
  - Pancreatitis [Recovered/Resolved]
  - COVID-19 [Recovered/Resolved]
  - Dyspnoea [Unknown]
  - Product dose omission issue [Recovered/Resolved]
  - Drug effect less than expected [Unknown]
  - Wrong technique in device usage process [Unknown]
